FAERS Safety Report 6288977-3 (Version None)
Quarter: 2009Q3

REPORT INFORMATION
  Report Type: 
  Country: None (occurrence: None)
  Receive Date: 20090729
  Receipt Date: 20090720
  Transmission Date: 20100115
  Serious: Yes (Death, Hospitalization)
  Sender: FDA-Public Use
  Company Number: TW-BAXTER-2009BH010859

PATIENT
  Sex: Male

DRUGS (5)
  1. DIANEAL [Suspect]
     Indication: PERITONEAL DIALYSIS
     Route: 033
     Dates: start: 20090501, end: 20090601
  2. DIANEAL [Suspect]
     Route: 033
     Dates: start: 20070201, end: 20090501
  3. DIANEAL [Suspect]
     Route: 033
     Dates: start: 20090501, end: 20090601
  4. EXTRANEAL [Suspect]
     Indication: PERITONEAL DIALYSIS
     Route: 033
     Dates: start: 20090501, end: 20090601
  5. EXTRANEAL [Suspect]
     Route: 033
     Dates: start: 20070201, end: 20090501

REACTIONS (1)
  - PNEUMONIA [None]
